FAERS Safety Report 17070736 (Version 1)
Quarter: 2019Q4

REPORT INFORMATION
  Report Type: Spontaneous
  Country: CN (occurrence: CN)
  Receive Date: 20191125
  Receipt Date: 20191125
  Transmission Date: 20200122
  Serious: Yes (Other)
  Sender: FDA-Public Use
  Company Number: CN-009507513-1911CHN009433

PATIENT
  Age: 63 Year
  Sex: Male

DRUGS (3)
  1. PEMBROLIZUMAB. [Suspect]
     Active Substance: PEMBROLIZUMAB
     Indication: HEPATOCELLULAR CARCINOMA
     Dosage: 2 MILLIGRAM/KILOGRAM, Q3W
     Dates: start: 20180208
  2. LENVATINIB MESYLATE [Suspect]
     Active Substance: LENVATINIB MESYLATE
     Dosage: 4 MILLIGRAM, QD
     Dates: start: 2018
  3. LENVATINIB MESYLATE [Suspect]
     Active Substance: LENVATINIB MESYLATE
     Indication: HEPATOCELLULAR CARCINOMA
     Dosage: 8 MILLIGRAM, QD
     Dates: start: 20180310, end: 2018

REACTIONS (4)
  - Diarrhoea [Unknown]
  - Drug effective for unapproved indication [Unknown]
  - Off label use [Unknown]
  - Thrombocytopenia [Unknown]

NARRATIVE: CASE EVENT DATE: 2018
